FAERS Safety Report 6921642-5 (Version None)
Quarter: 2010Q3

REPORT INFORMATION
  Report Type: 
  Country: None (occurrence: None)
  Receive Date: 20100812
  Receipt Date: 20100802
  Transmission Date: 20110219
  Serious: Yes (Other)
  Sender: FDA-Public Use
  Company Number: AU-ELI_LILLY_AND_COMPANY-AU201008000431

PATIENT
  Age: 31 Year
  Sex: Male

DRUGS (4)
  1. CYMBALTA [Suspect]
     Indication: DEPRESSION
     Dosage: 60 MG, DAILY (1/D)
     Route: 048
  2. ACETAMINOPHEN AND CODEINE PHOSPHATE [Concomitant]
  3. TRAMADOL HYDROCHLORIDE [Concomitant]
  4. SOMAC [Concomitant]

REACTIONS (1)
  - HEPATITIS [None]
